FAERS Safety Report 11393023 (Version 2)
Quarter: 2015Q3

REPORT INFORMATION
  Report Type: Spontaneous
  Country: US (occurrence: US)
  Receive Date: 20150818
  Receipt Date: 20150902
  Transmission Date: 20151125
  Serious: No
  Sender: FDA-Public Use
  Company Number: US-BAYER-2015-402635

PATIENT
  Age: 20 Year
  Sex: Female

DRUGS (3)
  1. TYLENOL [Concomitant]
     Active Substance: ACETAMINOPHEN
  2. BETASERON [Suspect]
     Active Substance: INTERFERON BETA-1B
     Indication: RELAPSING-REMITTING MULTIPLE SCLEROSIS
     Dosage: 4 MIU, UNK
     Route: 058
     Dates: start: 20050817, end: 20150827
  3. BETASERON [Suspect]
     Active Substance: INTERFERON BETA-1B
     Indication: RELAPSING-REMITTING MULTIPLE SCLEROSIS
     Dosage: UNK
     Route: 058
     Dates: start: 20150727, end: 20150810

REACTIONS (7)
  - Drug dose omission [None]
  - Chills [None]
  - Rash [Recovering/Resolving]
  - Ear pruritus [Recovering/Resolving]
  - Insomnia [None]
  - Nausea [None]
  - Rash pruritic [None]

NARRATIVE: CASE EVENT DATE: 2015
